FAERS Safety Report 5033200-0 (Version None)
Quarter: 2006Q2

REPORT INFORMATION
  Report Type: 
  Country: None (occurrence: None)
  Receive Date: 20060620
  Receipt Date: 20060609
  Transmission Date: 20061013
  Serious: Yes (Death, Hospitalization)
  Sender: FDA-Public Use
  Company Number: 163-21880-06050458

PATIENT
  Age: 75 Year
  Sex: Male

DRUGS (13)
  1. REVLIMID [Suspect]
     Indication: MULTIPLE MYELOMA
     Dosage: 20 MG, DAILY, ORAL
     Route: 048
     Dates: start: 20060506, end: 20060515
  2. GLUCOVANCE [Concomitant]
  3. ZESTRIL [Concomitant]
  4. VALTREX [Concomitant]
  5. COUMADIN [Concomitant]
  6. TOPROL-XL [Concomitant]
  7. MEGACE [Concomitant]
  8. INDOCIN [Concomitant]
  9. VICODIN [Concomitant]
  10. LASIX [Concomitant]
  11. POTASSIUM (POTASSIUM) [Concomitant]
  12. NEXIUM [Concomitant]
  13. CATAPRES [Concomitant]

REACTIONS (8)
  - DYSPNOEA [None]
  - HAEMOPTYSIS [None]
  - HEPATIC FAILURE [None]
  - HYPERBILIRUBINAEMIA [None]
  - MALIGNANT NEOPLASM PROGRESSION [None]
  - MULTIPLE MYELOMA [None]
  - PANCYTOPENIA [None]
  - RENAL FAILURE ACUTE [None]
